FAERS Safety Report 9582695 (Version 1)
Quarter: 2013Q4

REPORT INFORMATION
  Report Type: Spontaneous
  Country: US (occurrence: US)
  Receive Date: 20131002
  Receipt Date: 20131002
  Transmission Date: 20140711
  Serious: No
  Sender: FDA-Public Use
  Company Number: US-AMGEN-USASP2013041854

PATIENT
  Age: 61 Year
  Sex: Female
  Weight: 58.05 kg

DRUGS (9)
  1. ENBREL [Suspect]
     Indication: PRODUCT USED FOR UNKNOWN INDICATION
     Dosage: 50 MG, QWK
     Route: 058
  2. CALTRATE D                         /01483701/ [Concomitant]
     Dosage: 600-800, UNK, UNK
  3. METHOTREXATE [Concomitant]
     Dosage: 2.5 MG, UNK
  4. PREDNISONE [Concomitant]
     Dosage: 5 MG, UNK
  5. MIMVEY [Concomitant]
     Dosage: 1-0.5 MG, UNK, UNK
  6. CLARITIN                           /00413701/ [Concomitant]
     Dosage: 10 MG, UNK
  7. SIMVASTATIN [Concomitant]
     Dosage: 20 MG, UNK
  8. ALEVE [Concomitant]
     Dosage: 220 MG, UNK
  9. FOLIC ACID [Concomitant]
     Dosage: UNK

REACTIONS (3)
  - Sinusitis [Unknown]
  - Influenza [Unknown]
  - Bronchitis [Unknown]
